FAERS Safety Report 8965641 (Version 1)
Quarter: 2012Q4

REPORT INFORMATION
  Report Type: Spontaneous
  Country: US (occurrence: None)
  Receive Date: 20121212
  Receipt Date: 20121212
  Transmission Date: 20130627
  Serious: No
  Sender: FDA-Public Use
  Company Number: None

PATIENT

DRUGS (1)
  1. METFORMIN HCL [Suspect]
     Indication: DIABETES
     Dosage: take one tablet in the morning and one- half in the evening

REACTIONS (2)
  - Hepatic enzyme increased [None]
  - Alanine aminotransferase increased [None]
